FAERS Safety Report 20493648 (Version 4)
Quarter: 2022Q1

REPORT INFORMATION
  Report Type: Report from Study
  Country: US (occurrence: US)
  Receive Date: 20220221
  Receipt Date: 20220225
  Transmission Date: 20220423
  Serious: Yes (Hospitalization)
  Sender: FDA-Public Use
  Company Number: US-SANOFI-00973546

PATIENT
  Age: 56 Year
  Sex: Female

DRUGS (2)
  1. DUPILUMAB [Suspect]
     Active Substance: DUPILUMAB
     Indication: Asthma
     Dosage: 600 MG, 1X
     Route: 058
     Dates: start: 20211209, end: 20211209
  2. DUPILUMAB [Suspect]
     Active Substance: DUPILUMAB
     Dosage: 300 MG, QOW
     Route: 058
     Dates: start: 20220113

REACTIONS (16)
  - Blood magnesium decreased [Unknown]
  - Underweight [Not Recovered/Not Resolved]
  - Blood potassium decreased [Unknown]
  - Heart rate increased [Unknown]
  - Dyspnoea [Not Recovered/Not Resolved]
  - Weight decreased [Recovering/Resolving]
  - Dysarthria [Recovering/Resolving]
  - Feeding disorder [Recovering/Resolving]
  - Asthenia [Recovering/Resolving]
  - Dysphagia [Recovering/Resolving]
  - Fall [Unknown]
  - Ankle fracture [Unknown]
  - Asthma [Unknown]
  - Vitamin B12 decreased [Unknown]
  - Product use issue [Not Recovered/Not Resolved]
  - Product dose omission issue [Unknown]

NARRATIVE: CASE EVENT DATE: 20220122
